FAERS Safety Report 6638569-9 (Version None)
Quarter: 2010Q1

REPORT INFORMATION
  Report Type: 
  Country: None (occurrence: None)
  Receive Date: 20100317
  Receipt Date: 20100309
  Transmission Date: 20100710
  Serious: Yes (Other)
  Sender: FDA-Public Use
  Company Number: DE-BRISTOL-MYERS SQUIBB COMPANY-15010606

PATIENT
  Age: 73 Year
  Sex: Female

DRUGS (2)
  1. ONGLYZA [Suspect]
     Indication: DIABETES MELLITUS
     Dates: start: 20100217, end: 20100222
  2. ENBREL [Suspect]
     Indication: MUSCULOSKELETAL PAIN

REACTIONS (1)
  - MUSCULOSKELETAL PAIN [None]
